FAERS Safety Report 9524415 (Version 1)
Quarter: 2013Q3

REPORT INFORMATION
  Report Type: Spontaneous
  Country: US (occurrence: US)
  Receive Date: 20130916
  Receipt Date: 20130916
  Transmission Date: 20140515
  Serious: Yes (Other)
  Sender: FDA-Public Use
  Company Number: US-SANOFI-AVENTIS-2013SA090076

PATIENT
  Age: 48 Year
  Sex: Female

DRUGS (4)
  1. LANTUS [Suspect]
     Indication: TYPE 1 DIABETES MELLITUS
     Dosage: DOSE:10 UNIT(S)
     Route: 058
     Dates: start: 2001
  2. APIDRA SOLOSTAR [Suspect]
     Route: 065
  3. HUMALOG [Suspect]
     Route: 065
  4. SOLOSTAR [Concomitant]

REACTIONS (4)
  - Breast cancer [Unknown]
  - Breast mass [Unknown]
  - Road traffic accident [Unknown]
  - Pain [Unknown]
